FAERS Safety Report 24707191 (Version 2)
Quarter: 2024Q4

REPORT INFORMATION
  Report Type: Other
  Country: JP (occurrence: JP)
  Receive Date: 20241206
  Receipt Date: 20241218
  Transmission Date: 20250115
  Serious: Yes (Hospitalization)
  Sender: ALVOGEN
  Company Number: JP-ALVOGEN-2024095914

PATIENT
  Age: 54 Year
  Sex: Female

DRUGS (2)
  1. FENTANYL [Suspect]
     Active Substance: FENTANYL
     Indication: Proctalgia
     Dosage: PRESCRIBED 4 MG/DAY
  2. FENTANYL [Suspect]
     Active Substance: FENTANYL
     Indication: Proctalgia
     Dosage: APPLIED MORE THAN 10 PATCHES

REACTIONS (5)
  - Hypoxic-ischaemic encephalopathy [Recovering/Resolving]
  - Central nervous system lesion [Unknown]
  - Toxicity to various agents [Unknown]
  - Intentional product misuse [Unknown]
  - Overdose [Unknown]
